FAERS Safety Report 4337048-1 (Version None)
Quarter: 2004Q1

REPORT INFORMATION
  Report Type: 
  Country: None (occurrence: None)
  Receive Date: 20040329
  Receipt Date: 20040115
  Transmission Date: 20041129
  Serious: No
  Sender: FDA-Public Use
  Company Number: USA040156771

PATIENT
  Age: 38 Year
  Sex: Male
  Weight: 70 kg

DRUGS (2)
  1. STRATTERA [Suspect]
     Indication: VISION BLURRED
     Dosage: 40 MG/DAY
  2. LIPITOR [Concomitant]

REACTIONS (2)
  - PENIS DISORDER [None]
  - URINARY HESITATION [None]
